FAERS Safety Report 6087245-2 (Version None)
Quarter: 2009Q1

REPORT INFORMATION
  Report Type: 
  Country: None (occurrence: None)
  Receive Date: 20090219
  Receipt Date: 20081125
  Transmission Date: 20090719
  Serious: No
  Sender: FDA-Public Use
  Company Number: WAES 0809USA00874

PATIENT
  Age: 63 Year
  Sex: Female
  Weight: 79.3795 kg

DRUGS (3)
  1. ISENTRESS [Suspect]
     Indication: HIV INFECTION
     Dosage: 400 MG/BID/PO
     Route: 048
     Dates: start: 20080514
  2. VIDEX [Concomitant]
  3. VIREAD [Concomitant]

REACTIONS (2)
  - BLOOD TRIGLYCERIDES DECREASED [None]
  - GLYCOSYLATED HAEMOGLOBIN INCREASED [None]
